FAERS Safety Report 8221919-X (Version None)
Quarter: 2012Q1

REPORT INFORMATION
  Report Type: 
  Country: None (occurrence: None)
  Receive Date: 20120320
  Receipt Date: 20120314
  Transmission Date: 20120608
  Serious: Yes (Other)
  Sender: FDA-Public Use
  Company Number: US-AMGEN-USASP2012012029

PATIENT
  Age: 42 Year
  Sex: Female
  Weight: 70.839 kg

DRUGS (5)
  1. CALCIUM CARBONATE [Concomitant]
     Dosage: UNK
  2. VITAMIN C                          /00008001/ [Concomitant]
     Dosage: UNK
  3. SYNTHROID [Concomitant]
     Dosage: 75 MUG, QD
     Route: 048
  4. CELEBREX [Concomitant]
     Dosage: UNK
  5. ENBREL [Suspect]
     Indication: RHEUMATOID ARTHRITIS
     Dosage: 50 MG, QWK
     Route: 058
     Dates: start: 20090101, end: 20120207

REACTIONS (3)
  - MALIGNANT MELANOMA [None]
  - RHEUMATOID ARTHRITIS [None]
  - FATIGUE [None]
